FAERS Safety Report 9312705 (Version 2)
Quarter: 2013Q3

REPORT INFORMATION
  Report Type: Spontaneous
  Country: JP (occurrence: JP)
  Receive Date: 20130528
  Receipt Date: 20130709
  Transmission Date: 20140515
  Serious: Yes (Hospitalization)
  Sender: FDA-Public Use
  Company Number: JP-VERTEX PHARMACEUTICALS INC-2013-006427

PATIENT
  Age: 66 Year
  Sex: Female

DRUGS (11)
  1. TELAVIC [Suspect]
     Indication: CHRONIC HEPATITIS C
     Dosage: 2250 MG, QD
     Route: 048
     Dates: start: 20130305, end: 20130306
  2. TELAVIC [Suspect]
     Dosage: 1500 MG, QD
     Route: 048
     Dates: start: 20130307, end: 20130513
  3. REBETOL [Suspect]
     Indication: CHRONIC HEPATITIS C
     Dosage: 600 MG, QD
     Route: 048
     Dates: start: 20130305, end: 20130408
  4. REBETOL [Suspect]
     Dosage: 200 MG, QD
     Route: 048
     Dates: start: 20130409, end: 20130506
  5. REBETOL [Suspect]
     Dosage: 200 MG, QD
     Route: 048
     Dates: start: 20130531, end: 20130617
  6. REBETOL [Suspect]
     Dosage: 400 MG, QD
     Route: 048
     Dates: start: 20130618
  7. PEGINTRON [Suspect]
     Indication: CHRONIC HEPATITIS C
     Dosage: 1.5 ?G/KG, QW
     Route: 058
     Dates: start: 20130305, end: 20130507
  8. PEGINTRON [Suspect]
     Dosage: 1.5 ?G/KG, QW
     Route: 058
     Dates: start: 20130604
  9. MYSLEE [Concomitant]
     Dosage: 5 MG, PRN
     Route: 048
     Dates: start: 20130313
  10. BIOFERMIN R [Concomitant]
     Dosage: 3 G, QD
     Route: 048
     Dates: start: 20130402, end: 20130502
  11. ZYLORIC [Concomitant]
     Dosage: 100 MG, QD
     Route: 048
     Dates: start: 20130307, end: 20130513

REACTIONS (5)
  - Decreased appetite [Recovered/Resolved]
  - Haemoglobin decreased [Recovered/Resolved]
  - Blood creatine increased [Unknown]
  - Blood urea increased [Unknown]
  - Blood uric acid increased [Recovered/Resolved]
